FAERS Safety Report 8154927-8 (Version None)
Quarter: 2012Q1

REPORT INFORMATION
  Report Type: 
  Country: None (occurrence: None)
  Receive Date: 20120221
  Receipt Date: 20120215
  Transmission Date: 20120608
  Serious: Yes (Death, Other)
  Sender: FDA-Public Use
  Company Number: PHHY2010CA19859

PATIENT
  Sex: Male

DRUGS (1)
  1. ZOMETA [Suspect]
     Indication: PROSTATE CANCER
     Dosage: 4 MG, EVERY 12 WEEKS
     Route: 042
     Dates: start: 20080113, end: 20111213

REACTIONS (3)
  - NECROTISING FASCIITIS [None]
  - BLOOD PRESSURE INCREASED [None]
  - PROSTATIC SPECIFIC ANTIGEN INCREASED [None]
